FAERS Safety Report 11690129 (Version 1)
Quarter: 2015Q4

REPORT INFORMATION
  Report Type: Spontaneous
  Country: US (occurrence: None)
  Receive Date: 20151030
  Receipt Date: 20151030
  Transmission Date: 20160304
  Serious: Yes (Other)
  Sender: FDA-Public Use
  Company Number: None

PATIENT
  Age: 59 Year
  Sex: Female
  Weight: 50.8 kg

DRUGS (14)
  1. COSAMINE ASU [Concomitant]
  2. CHLORPHENIRAMINE. [Concomitant]
     Active Substance: CHLORPHENIRAMINE
  3. TAMOXIFEN [Concomitant]
     Active Substance: TAMOXIFEN
  4. BRIMONIDINE EYE DROPS [Concomitant]
  5. MAXALT [Concomitant]
     Active Substance: RIZATRIPTAN BENZOATE
  6. BOTOX [Suspect]
     Active Substance: ONABOTULINUMTOXINA
     Indication: MIGRAINE
     Dosage: INJECTION, ONCE ON 10/12/15, INJECTED INTO EYEBROW
     Dates: start: 20151012, end: 20151012
  7. AMBIEN [Concomitant]
     Active Substance: ZOLPIDEM TARTRATE
  8. MULTIVITAMIN [Concomitant]
     Active Substance: VITAMINS
  9. GINGKO BILOBA [Concomitant]
  10. TYLENOL [Concomitant]
     Active Substance: ACETAMINOPHEN
  11. SUDAFED [Concomitant]
     Active Substance: PSEUDOEPHEDRINE HYDROCHLORIDE
  12. MEGACE [Concomitant]
     Active Substance: MEGESTROL ACETATE
  13. CELEBREX [Concomitant]
     Active Substance: CELECOXIB
  14. COQ10 [Concomitant]
     Active Substance: UBIDECARENONE

REACTIONS (3)
  - Visual impairment [None]
  - Impaired driving ability [None]
  - Eyelid ptosis [None]

NARRATIVE: CASE EVENT DATE: 20151026
